FAERS Safety Report 5426437-X (Version None)
Quarter: 2007Q3

REPORT INFORMATION
  Report Type: 
  Country: None (occurrence: None)
  Receive Date: 20070827
  Receipt Date: 20070822
  Transmission Date: 20080115
  Serious: Yes (Hospitalization)
  Sender: FDA-Public Use
  Company Number: CN-ASTRAZENECA-2007AP04978

PATIENT
  Age: 111 Month
  Sex: Male
  Weight: 28 kg

DRUGS (2)
  1. RHINOCORT [Suspect]
     Indication: RHINITIS
     Route: 045
     Dates: start: 20070807, end: 20070807
  2. BI YANNING GRANULES [Suspect]
     Indication: RHINITIS
     Route: 048
     Dates: start: 20070807, end: 20070807

REACTIONS (9)
  - ALANINE AMINOTRANSFERASE INCREASED [None]
  - ANAPHYLACTIC REACTION [None]
  - ASPARTATE AMINOTRANSFERASE INCREASED [None]
  - BLOOD ALKALINE PHOSPHATASE INCREASED [None]
  - BLOOD LACTATE DEHYDROGENASE INCREASED [None]
  - MYOCARDITIS [None]
  - PALPITATIONS [None]
  - RASH GENERALISED [None]
  - URTICARIA [None]
